FAERS Safety Report 4983500-5 (Version None)
Quarter: 2006Q2

REPORT INFORMATION
  Report Type: 
  Country: None (occurrence: None)
  Receive Date: 20060426
  Receipt Date: 20060420
  Transmission Date: 20061013
  Serious: Yes (Hospitalization)
  Sender: FDA-Public Use
  Company Number: JO-SANOFI-SYNTHELABO-A01200603081

PATIENT
  Sex: Male
  Weight: 90 kg

DRUGS (3)
  1. ELOXATIN [Suspect]
     Indication: COLORECTAL CANCER METASTATIC
     Route: 042
     Dates: start: 20060101
  2. FLUOROURACIL [Concomitant]
     Indication: COLORECTAL CANCER METASTATIC
     Dosage: 400 MG/M2 IV BOLUS THEN 600 MG/M2 IV INFUSION
     Route: 042
  3. LEUCOVORIN [Concomitant]
     Route: 042

REACTIONS (3)
  - DEEP VEIN THROMBOSIS [None]
  - SWELLING [None]
  - TENDERNESS [None]
